FAERS Safety Report 5336997-5 (Version None)
Quarter: 2007Q2

REPORT INFORMATION
  Report Type: 
  Country: None (occurrence: None)
  Receive Date: 20070529
  Receipt Date: 20070518
  Transmission Date: 20071010
  Serious: Yes (Hospitalization)
  Sender: FDA-Public Use
  Company Number: US-GENENTECH-241746

PATIENT
  Sex: Male

DRUGS (3)
  1. AVASTIN [Suspect]
     Indication: COLORECTAL CANCER METASTATIC
     Dosage: 375 MG, Q2W
     Route: 042
     Dates: start: 20070205
  2. ELOXATIN [Suspect]
     Indication: COLORECTAL CANCER METASTATIC
     Dosage: 150 MG, UNK
     Dates: start: 20070205
  3. XELODA [Suspect]
     Indication: COLORECTAL CANCER METASTATIC
     Dosage: 150 MG, Q2W
     Route: 042
     Dates: start: 20070205

REACTIONS (1)
  - SUPRAVENTRICULAR TACHYCARDIA [None]
